FAERS Safety Report 10273826 (Version 2)
Quarter: 2014Q4

REPORT INFORMATION
  Report Type: Spontaneous
  Country: US (occurrence: US)
  Receive Date: 20140702
  Receipt Date: 20141103
  Transmission Date: 20150528
  Serious: Yes (Life-Threatening, Hospitalization, Other)
  Sender: FDA-Public Use
  Company Number: US-GLAXOSMITHKLINE-A1079349A

PATIENT
  Age: 56 Year
  Sex: Female
  Weight: 48.73 kg

DRUGS (2)
  1. ADVAIR HFA [Suspect]
     Active Substance: FLUTICASONE PROPIONATE\SALMETEROL XINAFOATE
     Indication: PRODUCT USED FOR UNKNOWN INDICATION
     Dosage: 500/50 MCG, UNKNOWN DOSING
     Route: 065
     Dates: start: 20080924
  2. VENTOLIN [Suspect]
     Active Substance: ALBUTEROL SULFATE
     Indication: CHRONIC OBSTRUCTIVE PULMONARY DISEASE
     Dosage: 90 MCG, UNKNOWN DOSING
     Route: 065
     Dates: start: 20140627

REACTIONS (6)
  - Choking [Recovered/Resolved]
  - Pneumonia [Recovered/Resolved]
  - Respiratory distress [Recovered/Resolved]
  - Dyspnoea [Recovered/Resolved]
  - Hypoxia [Recovered/Resolved]
  - Blindness [Recovered/Resolved]

NARRATIVE: CASE EVENT DATE: 20140929
